FAERS Safety Report 20827998 (Version 1)
Quarter: 2022Q2

REPORT INFORMATION
  Report Type: Spontaneous
  Country: US (occurrence: None)
  Receive Date: 20220513
  Receipt Date: 20220513
  Transmission Date: 20220721
  Serious: Yes (Disabling)
  Sender: FDA-Public Use
  Company Number: None

PATIENT
  Age: 46 Year
  Sex: Female
  Weight: 56.25 kg

DRUGS (9)
  1. ESCITALOPRAM [Suspect]
     Active Substance: ESCITALOPRAM OXALATE
     Indication: Anxiety
     Dosage: OTHER QUANTITY : 1 TABLET(S);?
     Route: 048
  2. ESCITALOPRAM [Suspect]
     Active Substance: ESCITALOPRAM OXALATE
     Indication: Stress
  3. ESCITALOPRAM [Concomitant]
     Active Substance: ESCITALOPRAM OXALATE
  4. 3 ml children^s Claritin [Concomitant]
  5. MAGNESIUM GLYCINATE [Concomitant]
  6. MELATONIN [Concomitant]
     Active Substance: MELATONIN
  7. I-theanine [Concomitant]
  8. VITAMIN D [Concomitant]
     Active Substance: VITAMIN D NOS
  9. FISH OIL [Concomitant]
     Active Substance: FISH OIL

REACTIONS (20)
  - Therapy cessation [None]
  - Withdrawal syndrome [None]
  - Electric shock sensation [None]
  - Anxiety [None]
  - Fatigue [None]
  - Hypersomnia [None]
  - Loss of consciousness [None]
  - Vertigo positional [None]
  - Urticaria [None]
  - Akathisia [None]
  - Suicidal ideation [None]
  - Depersonalisation/derealisation disorder [None]
  - Anhedonia [None]
  - Muscle spasms [None]
  - Burning sensation [None]
  - Feeling cold [None]
  - Chest pain [None]
  - Depression [None]
  - Antidepressant discontinuation syndrome [None]
  - Job dissatisfaction [None]

NARRATIVE: CASE EVENT DATE: 20201125
